FAERS Safety Report 7061408-1 (Version None)
Quarter: 2010Q4

REPORT INFORMATION
  Report Type: 
  Country: None (occurrence: None)
  Receive Date: 20101026
  Receipt Date: 20101019
  Transmission Date: 20110411
  Serious: Yes (Hospitalization)
  Sender: FDA-Public Use
  Company Number: AU-GENZYME-CAMP-1000379

PATIENT
  Sex: Female
  Weight: 65 kg

DRUGS (5)
  1. ALEMTUZUMAB [Suspect]
     Indication: MULTIPLE SCLEROSIS
     Dosage: 12 MG, QDX5
     Route: 042
     Dates: start: 20090720, end: 20090724
  2. INTERFERON BETA-1B [Concomitant]
     Indication: MULTIPLE SCLEROSIS
     Dosage: UNK
     Dates: start: 20080612, end: 20090505
  3. METHYLPREDNISOLONE [Concomitant]
     Indication: MULTIPLE SCLEROSIS
     Dosage: 1.0 G, QDX3
     Route: 042
     Dates: start: 20090720, end: 20090722
  4. PREDNISOLONE [Concomitant]
     Indication: SINUSITIS
     Dosage: 50 MG, QDX3
     Route: 048
     Dates: start: 20090821, end: 20090823
  5. AMOXIL [Concomitant]
     Indication: SINUSITIS
     Dosage: 500 MG, TID
     Route: 048
     Dates: start: 20090821, end: 20090828

REACTIONS (1)
  - LABYRINTHITIS [None]
